FAERS Safety Report 10752579 (Version 1)
Quarter: 2015Q1

REPORT INFORMATION
  Report Type: Report from Study
  Country: US (occurrence: US)
  Receive Date: 20150130
  Receipt Date: 20150130
  Transmission Date: 20150721
  Serious: No
  Sender: FDA-Public Use
  Company Number: US-ABBVIE-14P-163-1253875-00

PATIENT
  Sex: Male

DRUGS (2)
  1. NESTORIDEN [Concomitant]
     Indication: PRODUCT USED FOR UNKNOWN INDICATION
  2. LUPRON DEPOT [Suspect]
     Active Substance: LEUPROLIDE ACETATE
     Indication: PROSTATE CANCER
     Dosage: 3 MONTHS/SHOT
     Dates: start: 2002

REACTIONS (3)
  - Muscle fatigue [Recovered/Resolved]
  - Weight increased [Recovered/Resolved]
  - Fatigue [Recovered/Resolved]

NARRATIVE: CASE EVENT DATE: 2002
